FAERS Safety Report 20746224 (Version 1)
Quarter: 2022Q2

REPORT INFORMATION
  Report Type: Report from Study
  Country: US (occurrence: US)
  Receive Date: 20220425
  Receipt Date: 20220425
  Transmission Date: 20220720
  Serious: No
  Sender: FDA-Public Use
  Company Number: US-MIRM-000364

PATIENT
  Sex: Male

DRUGS (3)
  1. LIVMARLI [Suspect]
     Active Substance: MARALIXIBAT CHLORIDE
     Indication: Product used for unknown indication
     Route: 048
  2. 1325420 (GLOBALC3Sep19): Cholestyramine [Concomitant]
     Indication: Product used for unknown indication
  3. 1328777 (GLOBALC3Sep19): Ursodiol [Concomitant]
     Indication: Product used for unknown indication

REACTIONS (1)
  - Weight decreased [Unknown]
